FAERS Safety Report 23070096 (Version 1)
Quarter: 2023Q4

REPORT INFORMATION
  Report Type: Spontaneous
  Country: FR (occurrence: FR)
  Receive Date: 20231016
  Receipt Date: 20231016
  Transmission Date: 20240110
  Serious: Yes (Other)
  Sender: FDA-Public Use
  Company Number: None

PATIENT
  Age: 28 Year
  Sex: Female

DRUGS (5)
  1. ETHINYL ESTRADIOL\LEVONORGESTREL [Suspect]
     Active Substance: ETHINYL ESTRADIOL\LEVONORGESTREL
     Indication: Contraception
     Dosage: 1 DF DAILY, 21 CONSECUTIVE DAYS AND 7 DAYS OFF
     Route: 048
     Dates: start: 20190101
  2. PANTOPRAZOLE SODIUM [Suspect]
     Active Substance: PANTOPRAZOLE SODIUM
     Indication: Dyspepsia
     Dosage: 1 DF, 1X/DAY
     Route: 048
     Dates: start: 20220101, end: 20230131
  3. AMITRIPTYLINE HYDROCHLORIDE [Suspect]
     Active Substance: AMITRIPTYLINE HYDROCHLORIDE
     Indication: Dyspepsia
     Dosage: 5 DROP, 1X/DAY
     Route: 048
     Dates: start: 20220901, end: 20230131
  4. PHLOROGLUCINOL\1,3,5-TRIMETHOXYBENZENE [Concomitant]
     Active Substance: PHLOROGLUCINOL\1,3,5-TRIMETHOXYBENZENE
     Indication: Dyspepsia
     Dosage: AS NEEDED, FOR DIGESTIVE DISORDERS PROBABLY LINKED TO FUNCTIONAL DYSPEPSIA
     Route: 048
     Dates: start: 20220101
  5. CALCIUM CARBONATE\SODIUM ALGINATE [Concomitant]
     Active Substance: CALCIUM CARBONATE\SODIUM ALGINATE
     Indication: Dyspepsia
     Dosage: 1 DF, AS NEEDED
     Route: 048
     Dates: start: 20220101, end: 20230131

REACTIONS (1)
  - Idiopathic intracranial hypertension [Recovering/Resolving]

NARRATIVE: CASE EVENT DATE: 20230131
